FAERS Safety Report 4894783-4 (Version None)
Quarter: 2006Q1

REPORT INFORMATION
  Report Type: 
  Country: None (occurrence: None)
  Receive Date: 20060130
  Receipt Date: 20060106
  Transmission Date: 20060701
  Serious: Yes (Hospitalization, Other)
  Sender: FDA-Public Use
  Company Number: CA-NOVOPROD-249886

PATIENT
  Age: 83 Year
  Sex: Female
  Weight: 86 kg

DRUGS (12)
  1. LEVEMIR [Suspect]
     Indication: INSULIN-REQUIRING TYPE II DIABETES MELLITUS
     Dosage: 42 IU, UNK
     Dates: start: 20051208, end: 20051231
  2. HUMALOG [Concomitant]
     Indication: INSULIN-REQUIRING TYPE II DIABETES MELLITUS
     Dosage: 75 IU, QD (30+25+20)
     Dates: start: 20020506
  3. HUMULIN N [Concomitant]
     Indication: INSULIN-REQUIRING TYPE II DIABETES MELLITUS
     Dosage: 38 IU, QD
     Dates: start: 20011220
  4. ALLOPURINOL [Concomitant]
     Indication: HYPERURICAEMIA
     Dosage: 300 MG, QD
     Dates: start: 20020530
  5. NIFEDIPINE [Concomitant]
     Indication: HYPERTENSION
     Dosage: 30 MG, QD
     Dates: start: 19970605
  6. LEVOTHYROXINE SODIUM [Concomitant]
     Indication: HYPOTHYROIDISM
     Dosage: .088 MG, QD
     Dates: start: 20001108
  7. PRAVASTATIN [Concomitant]
     Indication: DYSLIPIDAEMIA
     Dosage: 40 MG, QD
     Dates: start: 20040730
  8. AAS [Concomitant]
     Dosage: 80 MG, UNK
     Dates: start: 19961009
  9. BISOPROLOL [Concomitant]
     Indication: HYPERTENSION
     Dosage: 5 MG, QD
     Dates: start: 20040730
  10. HYDROCHLOROTHIAZIDE W/LOSARTAN [Concomitant]
     Indication: HYPERTENSION
     Dosage: UNK MG, QD, 25-100
     Dates: start: 20020530
  11. DOCUSATE [Concomitant]
     Indication: CONSTIPATION
     Dosage: 200 MG, QD
     Dates: start: 20011226
  12. NITROGLYCERIN [Concomitant]
     Indication: ANGINA PECTORIS
     Dosage: .4 MG, UNK
     Dates: start: 20050906

REACTIONS (5)
  - BUNDLE BRANCH BLOCK LEFT [None]
  - BUNDLE BRANCH BLOCK RIGHT [None]
  - CONDITION AGGRAVATED [None]
  - RIGHT VENTRICULAR FAILURE [None]
  - VENTRICULAR HYPERTROPHY [None]
